FAERS Safety Report 10855973 (Version 1)
Quarter: 2015Q1

REPORT INFORMATION
  Report Type: Spontaneous
  Country: US (occurrence: None)
  Receive Date: 20150218
  Receipt Date: 20150218
  Transmission Date: 20150721
  Serious: Yes (Other)
  Sender: FDA-Public Use
  Company Number: None

PATIENT
  Age: 29 Year
  Sex: Female
  Weight: 63.96 kg

DRUGS (8)
  1. SINGULAIR [Concomitant]
     Active Substance: MONTELUKAST SODIUM
  2. AZITHROMYCIN [Suspect]
     Active Substance: AZITHROMYCIN ANHYDROUS
     Indication: SINUSITIS
     Dosage: 6, ONCE DAILY, TAKEN BY MOUTH
     Route: 048
     Dates: start: 20150216
  3. FLUEXTINE [Concomitant]
  4. CLA [Concomitant]
  5. NASONEX [Concomitant]
     Active Substance: MOMETASONE FUROATE
  6. SYNTHROID [Concomitant]
     Active Substance: LEVOTHYROXINE SODIUM
  7. LORATADIN [Concomitant]
     Active Substance: LORATADINE
  8. MELT DAILY VITAMINS [Concomitant]

REACTIONS (7)
  - Nausea [None]
  - Frequent bowel movements [None]
  - Diarrhoea [None]
  - Defaecation urgency [None]
  - Cold sweat [None]
  - Middle insomnia [None]
  - Chest pain [None]

NARRATIVE: CASE EVENT DATE: 20150216
